FAERS Safety Report 4456289-6 (Version None)
Quarter: 2004Q3

REPORT INFORMATION
  Report Type: 
  Country: None (occurrence: None)
  Receive Date: 20040922
  Receipt Date: 20040813
  Transmission Date: 20050211
  Serious: Yes (Hospitalization, Disabling)
  Sender: FDA-Public Use
  Company Number: US-MERCK-0408USA01200

PATIENT
  Age: 71 Year
  Sex: Female
  Weight: 61 kg

DRUGS (13)
  1. FOSAMAX [Concomitant]
     Route: 048
  2. ASPIRIN [Concomitant]
     Route: 065
  3. CALTRATE [Concomitant]
     Route: 048
  4. CLONAZEPAM [Concomitant]
     Route: 065
  5. ZETIA [Suspect]
     Indication: BLOOD CHOLESTEROL INCREASED
     Route: 048
     Dates: start: 20040701, end: 20040809
  6. IRON (UNSPECIFIED) AND VITAMINS (UNSPECIFIED) [Concomitant]
     Route: 065
  7. LISINOPRIL [Concomitant]
     Route: 065
     Dates: end: 20040804
  8. ALEVE [Concomitant]
     Route: 048
  9. NITROGLYCERIN [Concomitant]
     Route: 060
  10. ZOLOFT [Concomitant]
     Route: 048
  11. ZOCOR [Concomitant]
     Indication: BLOOD CHOLESTEROL INCREASED
     Route: 048
     Dates: start: 20031201, end: 20040809
  12. DETROL LA [Concomitant]
     Route: 065
  13. VITAMINS (UNSPECIFIED) [Concomitant]
     Route: 065

REACTIONS (6)
  - HEPATITIS [None]
  - HYPOGLYCAEMIA [None]
  - HYPOVOLAEMIA [None]
  - MYOSITIS [None]
  - ORTHOSTATIC HYPOTENSION [None]
  - URINARY TRACT INFECTION [None]
